FAERS Safety Report 5798373-0 (Version None)
Quarter: 2008Q3

REPORT INFORMATION
  Report Type: 
  Country: None (occurrence: None)
  Receive Date: 20080702
  Receipt Date: 20071211
  Transmission Date: 20090109
  Serious: No
  Sender: FDA-Public Use
  Company Number: A0698335A

PATIENT
  Age: 54 Year
  Sex: Female

DRUGS (1)
  1. PARNATE [Suspect]
     Indication: DEPRESSION
     Dosage: 10MG TWICE PER DAY
     Route: 048
     Dates: start: 20071001, end: 20071201

REACTIONS (1)
  - INSOMNIA [None]
